FAERS Safety Report 19262037 (Version 5)
Quarter: 2021Q4

REPORT INFORMATION
  Report Type: Spontaneous
  Country: NL (occurrence: NL)
  Receive Date: 20210516
  Receipt Date: 20211202
  Transmission Date: 20220303
  Serious: Yes (Life-Threatening, Other)
  Sender: FDA-Public Use
  Company Number: None

PATIENT
  Age: 78 Year
  Sex: Female
  Weight: 63 kg

DRUGS (12)
  1. CLOPIDOGREL [Suspect]
     Active Substance: CLOPIDOGREL BISULFATE
     Indication: Anticoagulant therapy
     Dosage: 1 DOSAGE FORMS DAILY; THERAPY END DATE: ASKU,BRAND NAME NOT SPECIFIED
     Route: 065
     Dates: start: 20210331
  2. NADROPARIN CALCIUM [Suspect]
     Active Substance: NADROPARIN CALCIUM
     Indication: Anticoagulant therapy
     Dosage: 1 DOSAGE FORMS DAILY;   1 DF, THERAPY END DATE: ASKU, NADROPARINE INJVLST 9500IE/ML / FRAXIPARINE IN
     Route: 065
     Dates: start: 20210331
  3. NADROPARIN CALCIUM [Suspect]
     Active Substance: NADROPARIN CALCIUM
     Indication: Hip surgery
  4. GLUCOSAMINE [Concomitant]
     Active Substance: GLUCOSAMINE
     Indication: Product used for unknown indication
     Dosage: 1500 MILLIGRAM DAILY; THERAPY START AND END DATE: ASKU
     Route: 065
  5. HYDROCHLOROTHIAZIDE [Concomitant]
     Active Substance: HYDROCHLOROTHIAZIDE
     Indication: Product used for unknown indication
     Dosage: 1X PER DAY 22.5 MG,BRAND NAME NOT SPECIFIED
     Route: 065
  6. SIMVASTATIN [Concomitant]
     Active Substance: SIMVASTATIN
     Indication: Product used for unknown indication
     Dosage: 20 MG, THERAPY START AND END DATE: ASKU,FO ,BRAND NAME NOT SPECIFIED
     Route: 065
  7. DAVITAMON 10 [Concomitant]
     Indication: Product used for unknown indication
     Dosage: 1 A 3 DRAGEES PER DAY, THERAPY START AND END DATE: ASKU,NON-CURRENT DRUG
     Route: 065
  8. CHOLECALCIFEROL [Concomitant]
     Active Substance: CHOLECALCIFEROL
     Indication: Product used for unknown indication
     Dosage: 50 MILLIGRAM DAILY; THERAPY START AND END DATE: ASKU,BRAND NAME NOT SPECIFIED
     Route: 065
  9. METOPROLOL SUCCINATE [Concomitant]
     Active Substance: METOPROLOL SUCCINATE
     Indication: Product used for unknown indication
     Dosage: 1/2 X 25, THERAPY START AND END DATE: ASKU ,BRAND NAME NOT SPECIFIED
     Route: 065
  10. LITHIUM CARBONATE [Concomitant]
     Active Substance: LITHIUM CARBONATE
     Indication: Product used for unknown indication
     Dosage: 300 MILLIGRAM DAILY;  THERAPY START AND END DATE: ASKU,BRAND NAME NOT SPECIFIED
     Route: 065
  11. OMEGA 3 [Concomitant]
     Active Substance: CAPSAICIN
     Indication: Product used for unknown indication
     Dosage: 2 DOSAGE FORMS DAILY;  THERAPY START AND END DATE: ASKU
     Route: 065
  12. PYRIDOSTIGMINE [Concomitant]
     Active Substance: PYRIDOSTIGMINE
     Indication: Myasthenia gravis
     Dosage: 90 MILLIGRAM DAILY;
     Route: 065
     Dates: start: 20210318

REACTIONS (1)
  - Transient ischaemic attack [Recovered/Resolved with Sequelae]

NARRATIVE: CASE EVENT DATE: 20210414
